FAERS Safety Report 4594919-9 (Version None)
Quarter: 2005Q1

REPORT INFORMATION
  Report Type: 
  Country: None (occurrence: None)
  Receive Date: 20050225
  Receipt Date: 20050210
  Transmission Date: 20050727
  Serious: Yes (Hospitalization, Other)
  Sender: FDA-Public Use
  Company Number: USA-2003-0010852

PATIENT
  Sex: Female
  Weight: 54.4 kg

DRUGS (12)
  1. OXYCONTIN [Suspect]
     Indication: PAIN
     Dosage: SEE IMAGE
     Route: 048
     Dates: end: 20030701
  2. FENTANYL [Suspect]
     Indication: PAIN
  3. CELEXA [Concomitant]
  4. ZONEGRAN [Concomitant]
  5. ACTIQ [Concomitant]
  6. ZOFRAN [Concomitant]
  7. CECLOR [Concomitant]
  8. ZANTAC [Concomitant]
  9. TOPAMAX (TOPIRAMATE)Q [Concomitant]
  10. GABITRIL [Concomitant]
  11. ULTRAM [Concomitant]
  12. PERCODAN (OXYCODONE TEREPHTHALATE, PHENACETIN, HOMATROPINE TEREPHTHALA [Concomitant]

REACTIONS (44)
  - ABDOMINAL DISCOMFORT [None]
  - ANXIETY [None]
  - ARTHRALGIA [None]
  - ASTHENIA [None]
  - BUTTOCK PAIN [None]
  - CHANGE OF BOWEL HABIT [None]
  - CHEST PAIN [None]
  - CHOKING SENSATION [None]
  - CONDITION AGGRAVATED [None]
  - CONSTIPATION [None]
  - CYSTITIS [None]
  - DECREASED APPETITE [None]
  - DEPRESSION [None]
  - DISTURBANCE IN ATTENTION [None]
  - DRUG DEPENDENCE [None]
  - DRUG INEFFECTIVE [None]
  - DRUG WITHDRAWAL SYNDROME [None]
  - DYSPNOEA [None]
  - ENTEROCOLITIS [None]
  - FAECAL INCONTINENCE [None]
  - FALL [None]
  - FATIGUE [None]
  - GRIP STRENGTH DECREASED [None]
  - HEADACHE [None]
  - HYPERHIDROSIS [None]
  - HYPOAESTHESIA [None]
  - HYPOTENSION [None]
  - INSOMNIA [None]
  - MOBILITY DECREASED [None]
  - MUSCLE SPASMS [None]
  - MUSCULOSKELETAL STIFFNESS [None]
  - OEDEMA PERIPHERAL [None]
  - PAIN [None]
  - PAIN IN EXTREMITY [None]
  - PARAESTHESIA [None]
  - PLEURITIC PAIN [None]
  - PNEUMOTHORAX [None]
  - POLLAKIURIA [None]
  - REFUSAL OF TREATMENT BY PATIENT [None]
  - SOMNOLENCE [None]
  - STRESS INCONTINENCE [None]
  - TREMOR [None]
  - URINARY INCONTINENCE [None]
  - WEIGHT DECREASED [None]
